FAERS Safety Report 19014109 (Version 2)
Quarter: 2021Q1

REPORT INFORMATION
  Report Type: Spontaneous
  Country: US (occurrence: US)
  Receive Date: 20210316
  Receipt Date: 20210330
  Transmission Date: 20210420
  Serious: Yes (Other)
  Sender: FDA-Public Use
  Company Number: US-GLAXOSMITHKLINE-US2021GSK038369

PATIENT
  Sex: Female

DRUGS (12)
  1. ZANTAC [Suspect]
     Active Substance: RANITIDINE HYDROCHLORIDE
     Indication: FLANK PAIN
  2. RANITIDINE. [Suspect]
     Active Substance: RANITIDINE
     Indication: BACK PAIN
     Dosage: 150 MG, QD
     Route: 065
     Dates: start: 200101, end: 201104
  3. ZANTAC [Suspect]
     Active Substance: RANITIDINE HYDROCHLORIDE
     Indication: GASTROOESOPHAGEAL REFLUX DISEASE
  4. ZANTAC [Suspect]
     Active Substance: RANITIDINE HYDROCHLORIDE
     Indication: GASTROOESOPHAGEAL REFLUX DISEASE
  5. RANITIDINE. [Suspect]
     Active Substance: RANITIDINE
     Indication: BACK PAIN
     Dosage: 150 MG, QD
     Route: 065
     Dates: start: 200101, end: 201104
  6. ZANTAC [Suspect]
     Active Substance: RANITIDINE HYDROCHLORIDE
     Indication: BACK PAIN
     Dosage: 150 MG, QD
     Route: 065
     Dates: start: 200101, end: 201104
  7. ZANTAC [Suspect]
     Active Substance: RANITIDINE HYDROCHLORIDE
     Indication: BACK PAIN
     Dosage: 150 MG, QD
     Route: 065
     Dates: start: 200101, end: 201104
  8. RANITIDINE. [Suspect]
     Active Substance: RANITIDINE
     Indication: FLANK PAIN
  9. RANITIDINE. [Suspect]
     Active Substance: RANITIDINE
     Indication: FLANK PAIN
  10. ZANTAC [Suspect]
     Active Substance: RANITIDINE HYDROCHLORIDE
     Indication: FLANK PAIN
  11. RANITIDINE. [Suspect]
     Active Substance: RANITIDINE
     Indication: GASTROOESOPHAGEAL REFLUX DISEASE
  12. RANITIDINE. [Suspect]
     Active Substance: RANITIDINE
     Indication: GASTROOESOPHAGEAL REFLUX DISEASE

REACTIONS (1)
  - Renal cancer [Unknown]
